FAERS Safety Report 7565955-5 (Version None)
Quarter: 2011Q2

REPORT INFORMATION
  Report Type: 
  Country: None (occurrence: None)
  Receive Date: 20110623
  Receipt Date: 20110620
  Transmission Date: 20111010
  Serious: Yes (Death)
  Sender: FDA-Public Use
  Company Number: US-AMGEN-USASP2011031607

PATIENT
  Sex: Male
  Weight: 100 kg

DRUGS (7)
  1. ALLOPURINOL [Concomitant]
     Dosage: 300 MG, QD
  2. IMMUNE GLOBULIN NOS [Concomitant]
  3. LISINOPRIL [Concomitant]
     Dosage: 20 MG, QD
  4. TRAZODONE HCL [Concomitant]
     Dosage: 25 MG, QD
  5. CORTICOSTEROIDS [Concomitant]
  6. NPLATE [Suspect]
     Indication: IDIOPATHIC THROMBOCYTOPENIC PURPURA
     Dates: start: 20110120
  7. OXYCODONE HCL [Concomitant]
     Dosage: UNK UNK, PRN

REACTIONS (1)
  - DEATH [None]
